FAERS Safety Report 25706216 (Version 1)
Quarter: 2025Q3

REPORT INFORMATION
  Report Type: Spontaneous
  Country: US (occurrence: US)
  Receive Date: 20250820
  Receipt Date: 20250820
  Transmission Date: 20251020
  Serious: No
  Sender: SPRINGWORKS THERAPEUTIC
  Company Number: US-SPRINGWORKS THERAPEUTICS-SW-003109

PATIENT
  Age: 23 Year
  Sex: Female

DRUGS (1)
  1. GOMEKLI [Suspect]
     Active Substance: MIRDAMETINIB
     Indication: Neurofibroma

REACTIONS (6)
  - Acne [Unknown]
  - Skin irritation [Unknown]
  - Abdominal discomfort [Unknown]
  - Abdominal pain upper [Unknown]
  - Rash pruritic [Unknown]
  - Rash [Unknown]
